FAERS Safety Report 5805871-X (Version None)
Quarter: 2008Q3

REPORT INFORMATION
  Report Type: 
  Country: None (occurrence: None)
  Receive Date: 20080710
  Receipt Date: 20080703
  Transmission Date: 20090109
  Serious: Yes (Hospitalization)
  Sender: FDA-Public Use
  Company Number: GB-ROCHE-558434

PATIENT
  Sex: Female
  Weight: 73 kg

DRUGS (7)
  1. ORLISTAT [Suspect]
     Indication: OBESITY
     Route: 048
     Dates: start: 20070617
  2. SIMVASTATIN [Concomitant]
     Route: 048
  3. CITALOPRAM HYDROBROMIDE [Concomitant]
     Indication: DEPRESSION
     Route: 048
  4. LANSOPRAZOLE [Concomitant]
     Route: 048
  5. LORATADINE [Concomitant]
     Indication: DEPRESSION
     Route: 048
  6. LEVOTHYROXINE SODIUM [Concomitant]
     Indication: THYROID DISORDER
     Route: 048
  7. ADCAL D3 [Concomitant]
     Dosage: ENTERED AS ADCALD32.

REACTIONS (3)
  - FALL [None]
  - ILL-DEFINED DISORDER [None]
  - JOINT INJURY [None]
